FAERS Safety Report 18692481 (Version 2)
Quarter: 2021Q2

REPORT INFORMATION
  Report Type: Spontaneous
  Country: CN (occurrence: CN)
  Receive Date: 20210103
  Receipt Date: 20210405
  Transmission Date: 20210717
  Serious: Yes (Other)
  Sender: FDA-Public Use
  Company Number: CN-BRISTOL-MYERS SQUIBB COMPANY-BMS-2020-110812

PATIENT
  Age: 7 Decade
  Sex: Female
  Weight: 50 kg

DRUGS (2)
  1. CATEQUENTINIB. [Suspect]
     Active Substance: CATEQUENTINIB
     Indication: NON-SMALL CELL LUNG CANCER
     Dosage: UNK
     Route: 065
     Dates: start: 202011
  2. OPDIVO [Suspect]
     Active Substance: NIVOLUMAB
     Indication: NON-SMALL CELL LUNG CANCER
     Dosage: 120 MILLIGRAM, Q2WK
     Route: 065
     Dates: start: 202011

REACTIONS (6)
  - Fatigue [Unknown]
  - Muscular weakness [Unknown]
  - Seizure [Unknown]
  - Eye movement disorder [Unknown]
  - Pallor [Unknown]
  - Prescribed underdose [Unknown]
